FAERS Safety Report 9697804 (Version 3)
Quarter: 2013Q4

REPORT INFORMATION
  Report Type: Spontaneous
  Country: US (occurrence: US)
  Receive Date: 20131120
  Receipt Date: 20131227
  Transmission Date: 20140711
  Serious: No
  Sender: FDA-Public Use
  Company Number: US-PFIZER INC-2013331033

PATIENT
  Sex: Female

DRUGS (3)
  1. XANAX [Suspect]
     Dosage: UNK
  2. PROTONIX [Suspect]
     Dosage: UNK
  3. ZOLOFT [Suspect]
     Dosage: UNK

REACTIONS (1)
  - Ulcer [Unknown]
